FAERS Safety Report 20298807 (Version 1)
Quarter: 2022Q1

REPORT INFORMATION
  Report Type: Spontaneous
  Country: CN (occurrence: None)
  Receive Date: 20220105
  Receipt Date: 20220105
  Transmission Date: 20220423
  Serious: Yes (Other)
  Sender: FDA-Public Use
  Company Number: CN-ROCHE-2994248

PATIENT
  Age: 39 Year
  Sex: Female

DRUGS (25)
  1. MABTHERA [Suspect]
     Active Substance: RITUXIMAB
     Indication: Follicular lymphoma
     Dosage: R-CHOP
     Route: 065
     Dates: start: 20150819
  2. MABTHERA [Suspect]
     Active Substance: RITUXIMAB
     Dosage: R-CHOP
     Route: 065
     Dates: start: 201909
  3. CYCLOPHOSPHAMIDE [Concomitant]
     Active Substance: CYCLOPHOSPHAMIDE
     Indication: Follicular lymphoma
     Dosage: R-CHOP: 19-AUG-2015, -SEP-2019
  4. CYCLOPHOSPHAMIDE [Concomitant]
     Active Substance: CYCLOPHOSPHAMIDE
     Dosage: CHOP
  5. CYCLOPHOSPHAMIDE [Concomitant]
     Active Substance: CYCLOPHOSPHAMIDE
     Dosage: VDCP
     Dates: start: 202110
  6. DOXORUBICIN [Concomitant]
     Active Substance: DOXORUBICIN
     Indication: Follicular lymphoma
     Dosage: R-CHOP: 19-AUG-2015, -SEP-2019
  7. DOXORUBICIN [Concomitant]
     Active Substance: DOXORUBICIN
     Dosage: CHOP
  8. VINCRISTINE [Concomitant]
     Active Substance: VINCRISTINE
     Indication: Follicular lymphoma
     Dosage: R-CHOP: 19-AUG-2015, -SEP-2019
  9. VINCRISTINE [Concomitant]
     Active Substance: VINCRISTINE
     Dosage: CHOP
  10. VINCRISTINE [Concomitant]
     Active Substance: VINCRISTINE
     Dosage: VDCP
     Dates: start: 202110
  11. PREDNISONE [Concomitant]
     Active Substance: PREDNISONE
     Indication: Follicular lymphoma
     Dosage: R-CHOP: 19-AUG-2015, -SEP-2019
  12. PREDNISONE [Concomitant]
     Active Substance: PREDNISONE
     Dosage: CHOP
  13. PREDNISONE [Concomitant]
     Active Substance: PREDNISONE
     Dosage: VDCP
     Dates: start: 202110
  14. CISPLATIN [Concomitant]
     Active Substance: CISPLATIN
     Indication: Follicular lymphoma
     Dates: start: 201909
  15. CISPLATIN [Concomitant]
     Active Substance: CISPLATIN
     Dosage: GDP
     Dates: start: 202107
  16. FLUDARABINE [Concomitant]
     Active Substance: FLUDARABINE PHOSPHATE
     Indication: Follicular lymphoma
     Dosage: DAY1-3
     Dates: start: 20191101
  17. DEXAMETHASONE [Concomitant]
     Active Substance: DEXAMETHASONE
     Indication: Follicular lymphoma
     Dosage: DAY1-5
     Dates: start: 20191101
  18. DEXAMETHASONE [Concomitant]
     Active Substance: DEXAMETHASONE
     Dosage: DAY1-3,8-10,15-17,22-24
     Dates: start: 20200308
  19. DEXAMETHASONE [Concomitant]
     Active Substance: DEXAMETHASONE
     Dosage: GDP
     Dates: start: 202107
  20. BLEOMYCIN [Concomitant]
     Active Substance: BLEOMYCIN SULFATE
     Indication: Follicular lymphoma
     Dates: start: 20191101
  21. LENALIDOMIDE [Concomitant]
     Active Substance: LENALIDOMIDE
     Indication: Follicular lymphoma
     Dosage: DAY1-21
     Route: 048
     Dates: start: 20200308
  22. LENALIDOMIDE [Concomitant]
     Active Substance: LENALIDOMIDE
     Route: 048
     Dates: end: 202102
  23. GEMCITABINE [Concomitant]
     Active Substance: GEMCITABINE
     Indication: Follicular lymphoma
     Dosage: GDP
     Dates: start: 202107
  24. DAUNORUBICIN [Concomitant]
     Active Substance: DAUNORUBICIN
     Indication: Follicular lymphoma
     Dosage: VDCP
     Dates: start: 202110
  25. GAZYVA [Concomitant]
     Active Substance: OBINUTUZUMAB
     Indication: Follicular lymphoma
     Dosage: VDCP
     Route: 042
     Dates: start: 202110

REACTIONS (9)
  - Hypersensitivity [Unknown]
  - Myelosuppression [Unknown]
  - Sinus bradycardia [Unknown]
  - Pyrexia [Unknown]
  - Platelet count decreased [Unknown]
  - Joint swelling [Unknown]
  - Palpitations [Unknown]
  - Chest discomfort [Unknown]
  - Gastrointestinal disorder [Unknown]

NARRATIVE: CASE EVENT DATE: 20150819
